FAERS Safety Report 4822585-3 (Version None)
Quarter: 2005Q4

REPORT INFORMATION
  Report Type: 
  Country: None (occurrence: None)
  Receive Date: 20051104
  Receipt Date: 20051019
  Transmission Date: 20060501
  Serious: Yes (Other)
  Sender: FDA-Public Use
  Company Number: 2005-0008760

PATIENT
  Age: 65 Year
  Sex: Male

DRUGS (12)
  1. HEPSERA [Suspect]
     Indication: HEPATITIS B
     Dosage: 10 MG , 1 IN 1 D, ORAL
     Route: 048
     Dates: start: 20050214
  2. ZEFFIX                              (LAMIVUDINE) [Concomitant]
  3. STRONG NEO-MINOPHAGEN C                     (STRONG NEO-MINOPHAGEN C) [Concomitant]
  4. PANTIVAN                     (PANTIVAN) [Concomitant]
  5. DIAZEPAM [Concomitant]
  6. JUVELA NICOTINATE (TOCOPHERYL NICOTINATE0 [Concomitant]
  7. TOUGHMAC E (TOUGHMAC E) [Concomitant]
  8. ASPARA K (ASPARTATE POTASSIUM) [Concomitant]
  9. ALLOPURINOL [Concomitant]
  10. NORVASC [Concomitant]
  11. CATLEP (INDOMETACIN) [Concomitant]
  12. HARNAL (TAMSULOSIN HYDROCHLORIDE) [Concomitant]

REACTIONS (4)
  - ALANINE AMINOTRANSFERASE INCREASED [None]
  - ASPARTATE AMINOTRANSFERASE INCREASED [None]
  - BLOOD ALBUMIN INCREASED [None]
  - LIVER DISORDER [None]
